FAERS Safety Report 5109872-9 (Version None)
Quarter: 2006Q3

REPORT INFORMATION
  Report Type: 
  Country: None (occurrence: None)
  Receive Date: 20060919
  Receipt Date: 20060919
  Transmission Date: 20061208
  Serious: Yes (Hospitalization)
  Sender: FDA-Public Use
  Company Number: None

PATIENT
  Sex: Female
  Weight: 15.7 kg

DRUGS (5)
  1. VINCRISTINE SULFATE [Suspect]
     Dosage: 4 MG
  2. PEG-L-ASPARAGINASE (K-H) [Suspect]
     Dosage: 1750 IU
  3. METHOTREXATE [Suspect]
     Dosage: 24 MG SEE IMAGE
  4. DEXAMETHASONE TAB [Suspect]
     Dosage: 138.5 MG  SEE IMAGE
  5. CYTARABINE [Suspect]
     Dosage: 70 MG

REACTIONS (16)
  - APPENDICEAL ABSCESS [None]
  - APPENDICITIS PERFORATED [None]
  - BACTERIAL INFECTION [None]
  - BLOOD PRESSURE DECREASED [None]
  - CARDIAC ARREST [None]
  - CATHETER RELATED INFECTION [None]
  - DISSEMINATED INTRAVASCULAR COAGULATION [None]
  - DYSPNOEA [None]
  - EPISTAXIS [None]
  - GINGIVAL BLEEDING [None]
  - HEART RATE INCREASED [None]
  - MOUTH HAEMORRHAGE [None]
  - MOUTH ULCERATION [None]
  - PHARYNGOLARYNGEAL PAIN [None]
  - POST PROCEDURAL HAEMORRHAGE [None]
  - SEPTIC SHOCK [None]
